FAERS Safety Report 7293860-0 (Version None)
Quarter: 2011Q1

REPORT INFORMATION
  Report Type: 
  Country: None (occurrence: None)
  Receive Date: 20110203
  Receipt Date: 20110119
  Transmission Date: 20110831
  Serious: Yes (Disabling)
  Sender: FDA-Public Use
  Company Number: GR-1184726

PATIENT
  Sex: Male

DRUGS (1)
  1. NEVANAC [Suspect]
     Dosage: OPHTHALMIC
     Route: 047

REACTIONS (2)
  - VISION BLURRED [None]
  - VISUAL FIELD DEFECT [None]
